FAERS Safety Report 8972124 (Version 1)
Quarter: 2012Q4

REPORT INFORMATION
  Report Type: 
  Country: DE (occurrence: DE)
  Receive Date: 20121219
  Receipt Date: 20121219
  Transmission Date: 20130627
  Serious: Yes (Other)
  Sender: FDA-Public Use
  Company Number: DE-BAYER-2012-132610

PATIENT
  Sex: Female

DRUGS (2)
  1. ASPIRIN [Suspect]
  2. PRADAXA [Suspect]
     Dosage: 10 mg, UNK

REACTIONS (3)
  - Blindness transient [Recovering/Resolving]
  - Photopsia [None]
  - Vision blurred [None]
